FAERS Safety Report 4279855-X (Version None)
Quarter: 2004Q1

REPORT INFORMATION
  Report Type: 
  Country: None (occurrence: None)
  Receive Date: 20040126
  Receipt Date: 20040114
  Transmission Date: 20041129
  Serious: Yes (Hospitalization)
  Sender: FDA-Public Use
  Company Number: JP-JNJFOC-20040102849

PATIENT
  Age: 54 Year
  Sex: Female

DRUGS (3)
  1. REMICADE [Suspect]
     Indication: RHEUMATOID ARTHRITIS
     Dosage: IN 1 AS NECESSARY, INTRAVENOUS DRIP
     Route: 041
     Dates: start: 20031121, end: 20031121
  2. ARAVA [Suspect]
     Dosage: 100 MG, IN 1 DAY, ORAL
     Route: 048
     Dates: start: 20040110, end: 20040112
  3. RHEUMATREX (METHOTREXATE SODIUM) UNKNOWN [Concomitant]

REACTIONS (4)
  - DIARRHOEA [None]
  - DRUG EFFECT DECREASED [None]
  - PYREXIA [None]
  - VOMITING [None]
